FAERS Safety Report 6265852-1 (Version None)
Quarter: 2009Q3

REPORT INFORMATION
  Report Type: 
  Country: None (occurrence: None)
  Receive Date: 20090713
  Receipt Date: 20090703
  Transmission Date: 20100115
  Serious: Yes (Hospitalization)
  Sender: FDA-Public Use
  Company Number: B0583383A

PATIENT
  Sex: Female

DRUGS (3)
  1. AUGMENTIN [Suspect]
     Indication: TONSILLITIS
     Dosage: 2TAB PER DAY
     Route: 048
     Dates: start: 20090612, end: 20090621
  2. BENTELAN [Suspect]
     Indication: TONSILLITIS
     Dosage: 3MG PER DAY
     Route: 048
     Dates: start: 20090612, end: 20090621
  3. EUTIROX [Concomitant]
     Dosage: 75MG PER DAY
     Route: 048
     Dates: start: 20080901, end: 20090626

REACTIONS (1)
  - HERPES ZOSTER [None]
